FAERS Safety Report 9633105 (Version 3)
Quarter: 2013Q4

REPORT INFORMATION
  Report Type: Spontaneous
  Country: US (occurrence: US)
  Receive Date: 20131018
  Receipt Date: 20131104
  Transmission Date: 20140711
  Serious: Yes (Life-Threatening, Hospitalization)
  Sender: FDA-Public Use
  Company Number: US-JNJFOC-20131007548

PATIENT
  Age: 28 Year
  Sex: Male

DRUGS (2)
  1. LOPERAMIDE HYDROCHLORIDE [Suspect]
     Indication: DRUG ABUSE
     Route: 048
  2. LOPERAMIDE HYDROCHLORIDE [Suspect]
     Indication: DRUG DEPENDENCE
     Route: 048

REACTIONS (6)
  - Ventricular tachycardia [Recovering/Resolving]
  - Electrocardiogram QT prolonged [Recovering/Resolving]
  - Syncope [Recovering/Resolving]
  - Drug abuse [Unknown]
  - Overdose [Unknown]
  - Off label use [Unknown]
